FAERS Safety Report 9104108 (Version 1)
Quarter: 2013Q1

REPORT INFORMATION
  Report Type: Spontaneous
  Country: AU (occurrence: AU)
  Receive Date: 20130219
  Receipt Date: 20130219
  Transmission Date: 20140127
  Serious: Yes (Other)
  Sender: FDA-Public Use
  Company Number: AU-PFIZER INC-2013055692

PATIENT
  Sex: Male

DRUGS (1)
  1. PRISTIQ [Suspect]
     Dosage: 100 MG, 1X/DAY
     Dates: end: 20130210

REACTIONS (4)
  - Depression [Unknown]
  - Mood swings [Unknown]
  - Nightmare [Unknown]
  - Drug withdrawal syndrome [Unknown]
